FAERS Safety Report 4678929-9 (Version None)
Quarter: 2005Q2

REPORT INFORMATION
  Report Type: 
  Country: None (occurrence: None)
  Receive Date: 20050531
  Receipt Date: 20050515
  Transmission Date: 20051028
  Serious: Yes (Other)
  Sender: FDA-Public Use
  Company Number: 2005075954

PATIENT
  Age: 33 Year
  Sex: Female

DRUGS (3)
  1. ZOLOFT [Suspect]
     Indication: DEPRESSION
     Dosage: 100 MG (100 MG, 1 IN 1 D), ORAL
     Route: 048
  2. RANITIDINE HYDROCHLORIDE [Suspect]
     Indication: ILL-DEFINED DISORDER
     Dates: start: 20050301
  3. NALBUPHINE [Suspect]
     Indication: LABOUR PAIN
     Dosage: 10 MG (10 MG, 1 IN TOTAL), INTRAVENOUS
     Route: 042
     Dates: start: 20050313, end: 20050313

REACTIONS (5)
  - AGGRESSION [None]
  - DRUG EXPOSURE DURING PREGNANCY [None]
  - NAUSEA [None]
  - PREGNANCY [None]
  - VOMITING [None]
